FAERS Safety Report 20924076 (Version 1)
Quarter: 2022Q2

REPORT INFORMATION
  Report Type: Spontaneous
  Country: US (occurrence: None)
  Receive Date: 20220606
  Receipt Date: 20220606
  Transmission Date: 20220721
  Serious: Yes (Death)
  Sender: FDA-Public Use
  Company Number: None

PATIENT
  Age: 84 Year
  Sex: Female
  Weight: 85.5 kg

DRUGS (3)
  1. OCTAGAM IMMUNE GLOBULIN (HUMAN) [Suspect]
     Active Substance: HUMAN IMMUNOGLOBULIN G
     Indication: Immunodeficiency common variable
     Dosage: OTHER FREQUENCY : EVERY 2 WEEKS;?
     Route: 042
     Dates: start: 20210731, end: 20220511
  2. VALSARTAN [Concomitant]
     Active Substance: VALSARTAN
     Dates: start: 20211130
  3. CLONIDINE [Concomitant]
     Active Substance: CLONIDINE
     Dates: start: 20220105

REACTIONS (1)
  - Cerebrovascular accident [None]

NARRATIVE: CASE EVENT DATE: 20220526
